FAERS Safety Report 13887158 (Version 1)
Quarter: 2017Q3

REPORT INFORMATION
  Report Type: Spontaneous
  Country: US (occurrence: US)
  Receive Date: 20170821
  Receipt Date: 20170821
  Transmission Date: 20171127
  Serious: No
  Sender: FDA-Public Use
  Company Number: US-ROCHE-1136439

PATIENT
  Sex: Female

DRUGS (4)
  1. HCTZ [Concomitant]
     Active Substance: HYDROCHLOROTHIAZIDE
     Route: 048
  2. ASA [Concomitant]
     Active Substance: ASPIRIN
     Dosage: 2 UNITS
     Route: 048
  3. METHOTREXATE. [Concomitant]
     Active Substance: METHOTREXATE
     Route: 065
     Dates: start: 1994
  4. ACTEMRA [Suspect]
     Active Substance: TOCILIZUMAB
     Indication: RHEUMATOID ARTHRITIS
     Route: 042
     Dates: start: 20120917

REACTIONS (8)
  - Headache [Unknown]
  - Diarrhoea [Unknown]
  - Somnolence [Unknown]
  - Blood glucose decreased [Unknown]
  - Fatigue [Unknown]
  - Tremor [Unknown]
  - Feeling hot [Unknown]
  - Pollakiuria [Unknown]
